FAERS Safety Report 5415945-3 (Version None)
Quarter: 2007Q3

REPORT INFORMATION
  Report Type: 
  Country: None (occurrence: None)
  Receive Date: 20070815
  Receipt Date: 20070814
  Transmission Date: 20080115
  Serious: Yes (Death)
  Sender: FDA-Public Use
  Company Number: US-SHR-US-2007-006360

PATIENT
  Age: 43 Year
  Sex: Male
  Weight: 52 kg

DRUGS (36)
  1. MAGNEVIST [Suspect]
     Indication: NUCLEAR MAGNETIC RESONANCE IMAGING
     Dosage: 20 ML, 1 DOSE
     Route: 042
     Dates: start: 20001217, end: 20001217
  2. MAGNEVIST [Suspect]
     Dosage: 15 ML, 1 DOSE
     Route: 042
     Dates: start: 20020906, end: 20020906
  3. MAGNEVIST [Suspect]
     Dosage: 20 ML, 1 DOSE
     Route: 042
     Dates: start: 20020926, end: 20020926
  4. MAGNEVIST [Suspect]
     Dosage: 60 ML, 1 DOSE
     Route: 042
     Dates: start: 20040708, end: 20040708
  5. MAGNEVIST [Suspect]
     Dosage: 20 ML, 1 DOSE
     Route: 042
     Dates: start: 20040828, end: 20040828
  6. ADCO-CAPTOPRIL [Concomitant]
     Dosage: 12.5 MG, 1X/DAY
     Dates: start: 20040719
  7. RENAGEL [Concomitant]
     Dosage: 1600 MG, 3X/DAY
  8. NEPHROCAPS [Concomitant]
     Dosage: 1 CAP(S), 1X/DAY
     Route: 048
  9. LEVOXYL [Concomitant]
     Dosage: 25 A?G, 1X/DAY
  10. ESOMEPRAZOLE MAGNESIUM [Concomitant]
     Dosage: 20 MG, 1X/DAY
     Route: 048
     Dates: start: 20040719
  11. FLUVOXAMINE MALEATE [Concomitant]
     Dosage: 50 MG, BED T.
     Route: 048
  12. NIFEREX [Concomitant]
     Dosage: 150 MG, BED T.
     Route: 048
  13. CARVEDILOL [Concomitant]
     Dosage: 6.25 MG, 2X/DAY
     Route: 048
  14. LOPRESSOR [Concomitant]
     Dosage: 12.5 MG, 2X/DAY
  15. PROTONIX [Concomitant]
     Dosage: 40 MG, 1X/DAY
     Route: 048
  16. WARFARIN SODIUM [Concomitant]
  17. ALDACTONE [Concomitant]
     Dosage: 12.5 MG, 1X/DAY
  18. WELLBUTRIN [Concomitant]
     Dosage: 150 MG, 1X/DAY
  19. SEROQUEL [Concomitant]
     Dosage: 25 MG, BED T.
  20. PHOSLO [Concomitant]
  21. THIAMINE HCL [Concomitant]
  22. COLACE [Concomitant]
  23. ZINC [Concomitant]
  24. QUININE [Concomitant]
     Dosage: 260 MG, 1X/DAY
  25. LUVOX [Concomitant]
  26. ATIVAN [Concomitant]
  27. RANITIDINE [Concomitant]
  28. INSULIN [Concomitant]
  29. SENNA SYRUP [Concomitant]
  30. BISACODYL [Concomitant]
  31. LACTULOSE [Concomitant]
  32. METOCLOPRAMIDE [Concomitant]
  33. EPOGEN [Concomitant]
  34. ULTRAVIST (PHARMACY BULK) [Concomitant]
     Dosage: 150 ML, 1 DOSE
     Route: 042
     Dates: start: 20000907, end: 20000907
  35. ULTRAVIST (PHARMACY BULK) [Concomitant]
     Dosage: 70 ML, 1 DOSE
     Route: 042
     Dates: start: 20040721, end: 20040721
  36. ULTRAVIST (PHARMACY BULK) [Concomitant]
     Dosage: 20 ML, 1 DOSE
     Route: 042
     Dates: start: 20040907, end: 20040907

REACTIONS (1)
  - NEPHROGENIC SYSTEMIC FIBROSIS [None]
